FAERS Safety Report 6178364-0 (Version None)
Quarter: 2009Q2

REPORT INFORMATION
  Report Type: 
  Country: None (occurrence: None)
  Receive Date: 20090504
  Receipt Date: 20090417
  Transmission Date: 20091009
  Serious: No
  Sender: FDA-Public Use
  Company Number: US-B.I. PHARMACEUTICALS,INC./RIDGEFIELD-2009-BP-05433BP

PATIENT
  Sex: Male

DRUGS (1)
  1. METACAM ORAL SUSPENSION [Suspect]
     Indication: ACCIDENTAL EXPOSURE
     Dosage: 4.7ML
     Route: 048
     Dates: start: 20090417, end: 20090417

REACTIONS (1)
  - HYPOAESTHESIA FACIAL [None]
